FAERS Safety Report 20592249 (Version 2)
Quarter: 2022Q2

REPORT INFORMATION
  Report Type: Spontaneous
  Country: FI (occurrence: FI)
  Receive Date: 20220314
  Receipt Date: 20220404
  Transmission Date: 20220721
  Serious: Yes (Hospitalization, Disabling, Other)
  Sender: FDA-Public Use
  Company Number: FI-TITAN PHARMACEUTICALS-2022TAN00013

PATIENT
  Sex: Male

DRUGS (2)
  1. BUPRENORPHINE [Suspect]
     Active Substance: BUPRENORPHINE
     Indication: Drug dependence
     Dosage: TABLET
     Route: 045
  2. PREGABALIN [Suspect]
     Active Substance: PREGABALIN
     Route: 065

REACTIONS (7)
  - Somnolence [Recovered/Resolved]
  - Spinal shock [Not Recovered/Not Resolved]
  - Myelopathy [Not Recovered/Not Resolved]
  - Rhabdomyolysis [Recovered/Resolved]
  - Compartment syndrome [Recovered/Resolved]
  - Muscular weakness [Recovering/Resolving]
  - Quadriparesis [Recovering/Resolving]
